FAERS Safety Report 6992087-7 (Version None)
Quarter: 2010Q3

REPORT INFORMATION
  Report Type: 
  Country: None (occurrence: None)
  Receive Date: 20100915
  Receipt Date: 20100915
  Transmission Date: 20110219
  Serious: No
  Sender: FDA-Public Use
  Company Number: None

PATIENT
  Age: 51 Year
  Sex: Female
  Weight: 55.3388 kg

DRUGS (2)
  1. LEVAQUIN [Suspect]
     Indication: URINARY TRACT INFECTION
     Dosage: 1 1PER DAY PO
     Route: 048
     Dates: start: 20100826, end: 20100904
  2. LEVAQUIN [Suspect]

REACTIONS (2)
  - ARTHRALGIA [None]
  - TENDONITIS [None]
